FAERS Safety Report 9897367 (Version 1)
Quarter: 2014Q1

REPORT INFORMATION
  Report Type: Spontaneous
  Country: BR (occurrence: BR)
  Receive Date: 20140214
  Receipt Date: 20140214
  Transmission Date: 20141002
  Serious: Yes (Other)
  Sender: FDA-Public Use
  Company Number: BR-JNJFOC-20140205831

PATIENT
  Age: 17 Year
  Sex: Female
  Weight: 49 kg

DRUGS (3)
  1. REMICADE [Suspect]
     Indication: COLITIS
     Route: 042
     Dates: start: 201312
  2. REMICADE [Suspect]
     Indication: COLITIS
     Route: 042
     Dates: start: 201311
  3. AZATHIOPRINE [Concomitant]
     Route: 065
     Dates: start: 201311

REACTIONS (1)
  - Weight increased [Not Recovered/Not Resolved]
